FAERS Safety Report 6496124-8 (Version None)
Quarter: 2009Q4

REPORT INFORMATION
  Report Type: 
  Country: None (occurrence: None)
  Receive Date: 20091214
  Receipt Date: 20091001
  Transmission Date: 20100525
  Serious: No
  Sender: FDA-Public Use
  Company Number: US-BRISTOL-MYERS SQUIBB COMPANY-14803571

PATIENT
  Age: 7 Decade
  Sex: Female

DRUGS (1)
  1. ABILIFY [Suspect]
     Dosage: INITIALY 2MG THEN 4MG;AGAIN REDUCED TO 2MG

REACTIONS (1)
  - DIARRHOEA [None]
